FAERS Safety Report 7338160-5 (Version None)
Quarter: 2011Q1

REPORT INFORMATION
  Report Type: 
  Country: None (occurrence: None)
  Receive Date: 20110308
  Receipt Date: 20110223
  Transmission Date: 20110831
  Serious: Yes (Hospitalization)
  Sender: FDA-Public Use
  Company Number: FR-ELI_LILLY_AND_COMPANY-FR201103000844

PATIENT
  Age: 58 Year
  Sex: Female

DRUGS (9)
  1. OMEPRAZOLE [Concomitant]
  2. VANCOMYCINE [Concomitant]
     Dosage: 1 D/F, DAILY (1/D)
     Route: 042
     Dates: start: 20090901
  3. DIFFU K [Concomitant]
  4. CYMBALTA [Suspect]
     Indication: DEPRESSION
     Dosage: 30 MG, UNKNOWN
     Route: 048
     Dates: start: 20090601, end: 20090923
  5. ENDOXAN [Concomitant]
     Indication: SCLERODERMA
  6. TRACLEER [Concomitant]
     Dosage: 62.5 MG, 2/D
  7. LASIX [Concomitant]
     Dosage: 40 MG, UNKNOWN
     Route: 048
  8. BACTRIM [Concomitant]
     Indication: IMMUNOSUPPRESSION
     Dates: start: 20090701, end: 20090901
  9. LEXOMIL [Concomitant]

REACTIONS (1)
  - DERMATITIS EXFOLIATIVE [None]
